FAERS Safety Report 9174750 (Version 1)
Quarter: 2013Q1

REPORT INFORMATION
  Report Type: Spontaneous
  Country: AU (occurrence: AU)
  Receive Date: 20130320
  Receipt Date: 20130320
  Transmission Date: 20140127
  Serious: Yes (Other)
  Sender: FDA-Public Use
  Company Number: AU-ELI_LILLY_AND_COMPANY-AU200908000007

PATIENT
  Age: 70 Year
  Sex: Female

DRUGS (6)
  1. CYMBALTA [Suspect]
     Dosage: 60 MG, DAILY (1/D)
     Route: 048
  2. SERTRALINE [Concomitant]
     Dosage: 200 MG, DAILY (1/D)
  3. SODIUM VALPROATE [Concomitant]
     Dosage: 400 MG, DAILY (1/D)
  4. ZIPRASIDONE [Concomitant]
     Dosage: 40 MG, DAILY (1/D)
  5. ESCITALOPRAM [Concomitant]
     Dosage: 10 MG, UNK
  6. LITHIUM CARBONATE [Concomitant]
     Dosage: 500 MG, DAILY (1/D)

REACTIONS (1)
  - Serotonin syndrome [Unknown]
